FAERS Safety Report 4446910-0 (Version None)
Quarter: 2004Q3

REPORT INFORMATION
  Report Type: 
  Country: None (occurrence: None)
  Receive Date: 20040908
  Receipt Date: 20040823
  Transmission Date: 20050211
  Serious: Yes (Hospitalization, Other)
  Sender: FDA-Public Use
  Company Number: L04-GRC-03752-01

PATIENT
  Age: 12 Year
  Sex: Female

DRUGS (2)
  1. CARBAMAZEPINE [Suspect]
     Indication: EPILEPSY
     Dosage: 600 MG QD
  2. CARBAMAZEPINE [Suspect]
     Indication: EPILEPSY
     Dosage: 400 MG QD

REACTIONS (9)
  - ANTICONVULSANT DRUG LEVEL ABOVE THERAPEUTIC [None]
  - BLOOD BICARBONATE DECREASED [None]
  - BLOOD CREATININE DECREASED [None]
  - BLOOD PRESSURE DECREASED [None]
  - COMA [None]
  - DRUG TOXICITY [None]
  - EPILEPSY [None]
  - MYOCLONUS [None]
  - PO2 INCREASED [None]
